FAERS Safety Report 5110449-X (Version None)
Quarter: 2006Q3

REPORT INFORMATION
  Report Type: 
  Country: None (occurrence: None)
  Receive Date: 20060921
  Receipt Date: 20060908
  Transmission Date: 20061208
  Serious: Yes (Hospitalization, Other)
  Sender: FDA-Public Use
  Company Number: PHEH2006US11534

PATIENT
  Age: 62 Year
  Sex: Female

DRUGS (1)
  1. ZOMETA [Suspect]
     Dates: start: 20051221

REACTIONS (5)
  - FALL [None]
  - HEAD INJURY [None]
  - LOWER LIMB FRACTURE [None]
  - OSTEONECROSIS [None]
  - TOOTH EXTRACTION [None]
